FAERS Safety Report 21324314 (Version 2)
Quarter: 2022Q3

REPORT INFORMATION
  Report Type: Spontaneous
  Country: US (occurrence: US)
  Receive Date: 20220912
  Receipt Date: 20220925
  Transmission Date: 20221026
  Serious: No
  Sender: FDA-Public Use
  Company Number: US-LUPIN PHARMACEUTICALS INC.-2022-10919

PATIENT
  Sex: Male

DRUGS (3)
  1. ALBUTEROL SULFATE [Suspect]
     Active Substance: ALBUTEROL SULFATE
     Indication: Cardiac disorder
     Dosage: UNK, INHALE 2 PUFFS EVERY 4 H AS NEEDED
  2. ALBUTEROL SULFATE [Suspect]
     Active Substance: ALBUTEROL SULFATE
     Indication: Hypersensitivity
  3. ALBUTEROL SULFATE [Suspect]
     Active Substance: ALBUTEROL SULFATE
     Indication: Post procedural complication

REACTIONS (3)
  - Device delivery system issue [Unknown]
  - Product preparation error [Unknown]
  - Off label use [Unknown]
